FAERS Safety Report 17638518 (Version 2)
Quarter: 2021Q4

REPORT INFORMATION
  Report Type: Spontaneous
  Country: US (occurrence: US)
  Receive Date: 20200407
  Receipt Date: 20211108
  Transmission Date: 20220303
  Serious: No
  Sender: FDA-Public Use
  Company Number: US-LANNETT COMPANY, INC.-US-2020LAN000021

PATIENT
  Sex: Male

DRUGS (1)
  1. DICYCLOMINE HYDROCHLORIDE [Suspect]
     Active Substance: DICYCLOMINE HYDROCHLORIDE
     Indication: Irritable bowel syndrome
     Dosage: 20 MG, UNK
     Route: 065
     Dates: start: 2008

REACTIONS (4)
  - Blood pressure increased [Unknown]
  - Muscle spasms [Unknown]
  - Disorientation [Unknown]
  - Drug hypersensitivity [Unknown]
